FAERS Safety Report 5378920-3 (Version None)
Quarter: 2007Q3

REPORT INFORMATION
  Report Type: 
  Country: None (occurrence: None)
  Receive Date: 20070705
  Receipt Date: 20060926
  Transmission Date: 20080115
  Serious: No
  Sender: FDA-Public Use
  Company Number: A0621570A

PATIENT
  Age: 52 Year
  Sex: Male

DRUGS (2)
  1. PARNATE [Suspect]
     Indication: DEPRESSION
     Dosage: 20MG TWICE PER DAY
     Route: 048
     Dates: start: 20060701
  2. PROPRANOLOL [Concomitant]

REACTIONS (1)
  - ALOPECIA [None]
